FAERS Safety Report 8292254-9 (Version None)
Quarter: 2012Q2

REPORT INFORMATION
  Report Type: 
  Country: None (occurrence: None)
  Receive Date: 20120417
  Receipt Date: 20120404
  Transmission Date: 20120825
  Serious: Yes (Hospitalization, Other)
  Sender: FDA-Public Use
  Company Number: NL-MEDIMMUNE-MEDI-0014250

PATIENT
  Sex: Female
  Weight: 10.35 kg

DRUGS (9)
  1. SYNAGIS [Suspect]
     Indication: HEART DISEASE CONGENITAL
     Route: 030
     Dates: start: 20111019, end: 20111019
  2. CARVEDILOL [Concomitant]
  3. SYNAGIS [Suspect]
     Route: 030
     Dates: start: 20111116, end: 20120406
  4. SPIRONOLACTUM [Concomitant]
  5. FUROSEMIDE [Concomitant]
  6. CARBASALATE CALCIUM [Concomitant]
  7. CAPTOPRIL [Concomitant]
  8. POLYETHYLENE GLYCOL [Concomitant]
  9. FLUTICASONE PROPIONATE [Concomitant]

REACTIONS (8)
  - PYREXIA [None]
  - HYPOPHAGIA [None]
  - RESPIRATORY SYNCYTIAL VIRUS TEST POSITIVE [None]
  - RHINORRHOEA [None]
  - VOMITING [None]
  - DYSPNOEA [None]
  - WEIGHT DECREASED [None]
  - COUGH [None]
